FAERS Safety Report 5387512-1 (Version None)
Quarter: 2007Q2

REPORT INFORMATION
  Report Type: 
  Country: None (occurrence: None)
  Receive Date: 20070613
  Receipt Date: 20070613
  Transmission Date: 20071010
  Serious: Yes (Hospitalization)
  Sender: FDA-Public Use
  Company Number: None

PATIENT
  Age: 68 Year
  Sex: Female
  Weight: 110.2241 kg

DRUGS (8)
  1. XELODA [Suspect]
     Indication: BREAST CANCER
     Dosage: 650MG/M2/BID14DAYS/ORAL
     Route: 048
     Dates: start: 20070525, end: 20070608
  2. ABRAXANE [Suspect]
     Indication: BREAST CANCER
     Dosage: 533MG/M2/Q 21 DAYS/IV
     Route: 042
     Dates: start: 20070525, end: 20070525
  3. FUROSEMIDE [Concomitant]
  4. LANTUS [Concomitant]
  5. LISINOPRIL [Concomitant]
  6. METFORMIN HCL [Concomitant]
  7. OS-CAL [Concomitant]
  8. DYNACIRC CR [Concomitant]

REACTIONS (3)
  - DEHYDRATION [None]
  - DIZZINESS [None]
  - HYPOTENSION [None]
